FAERS Safety Report 7737442-2 (Version None)
Quarter: 2011Q3

REPORT INFORMATION
  Report Type: 
  Country: None (occurrence: None)
  Receive Date: 20110908
  Receipt Date: 20110826
  Transmission Date: 20111222
  Serious: Yes (Hospitalization)
  Sender: FDA-Public Use
  Company Number: US-GLAXOSMITHKLINE-A0897010A

PATIENT
  Age: 59 Year
  Sex: Female
  Weight: 74.5 kg

DRUGS (4)
  1. WELLBUTRIN SR [Concomitant]
  2. PREVACID [Concomitant]
  3. AVANDIA [Suspect]
     Indication: TYPE 2 DIABETES MELLITUS
     Dosage: 4MG PER DAY
     Route: 048
     Dates: start: 20010616, end: 20030608
  4. SYNTHROID [Concomitant]

REACTIONS (7)
  - CARDIAC ARREST [None]
  - CARDIOVASCULAR DISORDER [None]
  - ATRIAL FIBRILLATION [None]
  - CORONARY ARTERY BYPASS [None]
  - VENTRICULAR FIBRILLATION [None]
  - MYOCARDIAL INFARCTION [None]
  - RESPIRATORY FAILURE [None]
